FAERS Safety Report 7981993-2 (Version None)
Quarter: 2011Q4

REPORT INFORMATION
  Report Type: 
  Country: None (occurrence: None)
  Receive Date: 20111215
  Receipt Date: 20111207
  Transmission Date: 20120403
  Serious: Yes (Hospitalization)
  Sender: FDA-Public Use
  Company Number: AU-B.I. PHARMACEUTICALS,INC./RIDGEFIELD-2011-AU-02446AU

PATIENT
  Sex: Female
  Weight: 79 kg

DRUGS (4)
  1. MINIPRESS [Concomitant]
     Dates: start: 20040201
  2. LEVOTHYROXINE SODIUM [Concomitant]
     Dosage: 50 MG
     Dates: start: 20020101
  3. PRADAXA [Suspect]
     Indication: ATRIAL FIBRILLATION
     Dosage: 300 MG
     Dates: start: 20110826, end: 20110906
  4. AVAPRO [Concomitant]
     Dates: start: 20070101

REACTIONS (3)
  - DIZZINESS [None]
  - SWELLING FACE [None]
  - DYSPNOEA [None]
